FAERS Safety Report 10210348 (Version 4)
Quarter: 2015Q1

REPORT INFORMATION
  Report Type: Report from Study
  Country: JP (occurrence: None)
  Receive Date: 20140528
  Receipt Date: 20150326
  Transmission Date: 20150720
  Serious: Yes (Hospitalization, Disabling, Other)
  Sender: FDA-Public Use
  Company Number: 2014MPI00631

PATIENT
  Age: 44 Year
  Sex: Male
  Weight: 70 kg

DRUGS (13)
  1. ADCETRIS [Suspect]
     Active Substance: BRENTUXIMAB VEDOTIN
     Indication: HODGKIN^S DISEASE STAGE IV
     Dosage: 126 MG, Q28D, IV DRIP
     Route: 041
     Dates: start: 20140507, end: 20140708
  2. ADCETRIS [Suspect]
     Active Substance: BRENTUXIMAB VEDOTIN
     Dosage: 126 MG, Q28D, IV DRIP
     Route: 041
     Dates: start: 20140507, end: 20140708
  3. BENABAX [Concomitant]
  4. KENKETU GLOVENIN-I [Concomitant]
     Active Substance: HUMAN IMMUNOGLOBULIN G
  5. OXYNORM [Concomitant]
     Active Substance: OXYCODONE HYDROCHLORIDE
  6. PREDONINE [Concomitant]
     Active Substance: PREDNISOLONE\PREDNISOLONE ACETATE\PREDNISOLONE SODIUM SUCCINATE
  7. OXINORM [Concomitant]
     Active Substance: OXYCODONE HYDROCHLORIDE
  8. KENKETU GLOVENIN-I [Concomitant]
     Active Substance: HUMAN IMMUNOGLOBULIN G
  9. DIFLUCAN [Concomitant]
     Active Substance: FLUCONAZOLE
  10. CORTICOSTEROIDS [Concomitant]
     Active Substance: CORTICOSTEROID NOS
  11. PREDONINE [Concomitant]
     Active Substance: PREDNISOLONE\PREDNISOLONE ACETATE\PREDNISOLONE SODIUM SUCCINATE
  12. GANCICLOVIR. [Concomitant]
     Active Substance: GANCICLOVIR
  13. CODEINE PHOSPHATE [Concomitant]
     Active Substance: CODEINE PHOSPHATE

REACTIONS (8)
  - Cardiac failure [None]
  - Palpitations [None]
  - Dyspnoea [None]
  - Condition aggravated [None]
  - Peripheral sensory neuropathy [None]
  - Cardiotoxicity [None]
  - Herpes zoster [None]
  - Cardiomyopathy [None]

NARRATIVE: CASE EVENT DATE: 20140510
